FAERS Safety Report 9455359 (Version 1)
Quarter: 2013Q3

REPORT INFORMATION
  Report Type: Spontaneous
  Country: FR (occurrence: FR)
  Receive Date: 20130813
  Receipt Date: 20130813
  Transmission Date: 20140515
  Serious: Yes (Hospitalization)
  Sender: FDA-Public Use
  Company Number: PHHY2013FR085982

PATIENT
  Sex: Male

DRUGS (5)
  1. GILENYA [Suspect]
     Indication: MULTIPLE SCLEROSIS
     Dosage: 0.5 MG, QD
     Route: 064
     Dates: end: 20120822
  2. CITALOPRAM [Concomitant]
     Indication: DEPRESSION
     Dosage: 20 MG, UNK
     Route: 064
     Dates: end: 20130403
  3. THYROZOL [Concomitant]
     Indication: BASEDOW^S DISEASE
     Dosage: 0.5 MG, QD
     Route: 064
     Dates: end: 20130403
  4. LEVOTHYROX [Concomitant]
     Indication: BASEDOW^S DISEASE
     Dosage: UNK
     Route: 064
     Dates: end: 20130403
  5. AUGMENTAN                          /00756801/ [Concomitant]
     Indication: CLITORIS ABSCESS
     Dosage: 2 G, QD
     Route: 064
     Dates: start: 20120802, end: 20120809

REACTIONS (3)
  - Hyperthyroidism [Recovered/Resolved]
  - Tachycardia [Recovered/Resolved]
  - Foetal exposure during pregnancy [Unknown]
